FAERS Safety Report 6893079-9 (Version None)
Quarter: 2010Q3

REPORT INFORMATION
  Report Type: 
  Country: None (occurrence: None)
  Receive Date: 20100731
  Receipt Date: 20090331
  Transmission Date: 20110219
  Serious: No
  Sender: FDA-Public Use
  Company Number: US-PFIZER INC-2008159315

PATIENT
  Age: 88 Year
  Sex: Female
  Weight: 40.816 kg

DRUGS (1)
  1. NORVASC [Suspect]
     Dosage: 2.5MG/DAY

REACTIONS (1)
  - LARYNGITIS [None]
